FAERS Safety Report 23427921 (Version 2)
Quarter: 2024Q2

REPORT INFORMATION
  Report Type: Spontaneous
  Country: US (occurrence: US)
  Receive Date: 20240122
  Receipt Date: 20240405
  Transmission Date: 20240716
  Serious: No
  Sender: FDA-Public Use
  Company Number: US-PFIZER INC-PV202400005831

PATIENT
  Age: 82 Year
  Sex: Female

DRUGS (1)
  1. IBRANCE [Suspect]
     Active Substance: PALBOCICLIB
     Dosage: 125 MG, CYCLIC; BY MOUTH ONCE DAILY WITH FOOD FOR 21 DAYS ON, 7 DAYS OFF OF EACH 28 DAY CYCLE
     Route: 048

REACTIONS (1)
  - Memory impairment [Unknown]
